FAERS Safety Report 21739535 (Version 1)
Quarter: 2022Q4

REPORT INFORMATION
  Report Type: Spontaneous
  Country: US (occurrence: None)
  Receive Date: 20221215
  Receipt Date: 20221215
  Transmission Date: 20230113
  Serious: No
  Sender: FDA-Public Use
  Company Number: None

PATIENT
  Sex: Female

DRUGS (1)
  1. DUPIXENT [Suspect]
     Active Substance: DUPILUMAB
     Indication: Asthma
     Dosage: OTHER QUANTITY : 300MG / 2ML;?FREQUENCY : EVERY OTHER WEEK;?
     Route: 058
     Dates: start: 20220929

REACTIONS (3)
  - Vertigo [None]
  - Dizziness [None]
  - Dizziness postural [None]
